FAERS Safety Report 8098124 (Version 2)
Quarter: 2013Q4

REPORT INFORMATION
  Report Type: Spontaneous
  Country: US (occurrence: US)
  Receive Date: 20110819
  Receipt Date: 20131125
  Transmission Date: 20140711
  Serious: Yes (Hospitalization)
  Sender: FDA-Public Use
  Company Number: US-JNJFOC-20110806719

PATIENT
  Age: 52 Year
  Sex: Female
  Weight: 56.7 kg

DRUGS (17)
  1. DURAGESIC [Suspect]
     Indication: PAIN
     Route: 062
     Dates: start: 20110412
  2. CYMBALTA [Concomitant]
     Indication: DEPRESSION
     Route: 048
     Dates: start: 201104, end: 201108
  3. CELEXA [Concomitant]
     Indication: DEPRESSION
     Route: 048
  4. ZOLPIDEM [Concomitant]
     Indication: SLEEP DISORDER
     Route: 048
  5. PROTONIX [Concomitant]
     Indication: ULCER HAEMORRHAGE
     Route: 048
  6. PYRIDIUM [Concomitant]
     Indication: DYSURIA
     Route: 048
  7. LASIX [Concomitant]
     Indication: OEDEMA
     Route: 048
  8. AMITRIPTYLINE [Concomitant]
     Indication: MIGRAINE
     Route: 048
  9. LACTULOSE [Concomitant]
     Indication: CONSTIPATION
     Route: 048
  10. BACTRIM [Concomitant]
     Indication: URINARY TRACT INFECTION
     Route: 048
  11. FIORICET [Concomitant]
     Indication: MIGRAINE
     Route: 048
  12. ASPIRIN [Concomitant]
     Indication: CARDIAC DISORDER
     Route: 048
  13. SEROQUEL [Concomitant]
     Indication: SLEEP DISORDER
     Route: 048
  14. TRAZODONE [Concomitant]
     Indication: SLEEP DISORDER
     Route: 048
  15. KLONOPIN [Concomitant]
     Indication: DEPRESSION
     Route: 048
  16. NORVASC [Concomitant]
     Indication: BLOOD PRESSURE
     Route: 048
  17. ZOFRAN [Concomitant]
     Indication: NAUSEA
     Route: 048

REACTIONS (8)
  - Impaired gastric emptying [Recovered/Resolved]
  - Wrong technique in drug usage process [Not Recovered/Not Resolved]
  - Wrong technique in drug usage process [Not Recovered/Not Resolved]
  - Wrong technique in drug usage process [Not Recovered/Not Resolved]
  - Fall [Not Recovered/Not Resolved]
  - Breakthrough pain [Not Recovered/Not Resolved]
  - Product quality issue [Unknown]
  - Product adhesion issue [Unknown]
